FAERS Safety Report 14338146 (Version 1)
Quarter: 2017Q4

REPORT INFORMATION
  Report Type: Spontaneous
  Country: US (occurrence: US)
  Receive Date: 20171229
  Receipt Date: 20171229
  Transmission Date: 20180321
  Serious: No
  Sender: FDA-Public Use
  Company Number: None

PATIENT
  Age: 34 Year
  Sex: Female
  Weight: 61.24 kg

DRUGS (1)
  1. NIGHTTIME COLD N COUGH 4 KIDS [Suspect]
     Active Substance: HOMEOPATHICS
     Indication: NASOPHARYNGITIS

REACTIONS (3)
  - Product packaging issue [None]
  - Product use in unapproved indication [None]
  - Product label issue [None]
